FAERS Safety Report 23857720 (Version 1)
Quarter: 2024Q2

REPORT INFORMATION
  Report Type: Spontaneous
  Country: US (occurrence: US)
  Receive Date: 20240515
  Receipt Date: 20240515
  Transmission Date: 20240716
  Serious: No
  Sender: FDA-Public Use
  Company Number: US-Kiniksa Pharmaceuticals Ltd.-2023KPU001005

PATIENT
  Age: 40 Year
  Sex: Male

DRUGS (4)
  1. ARCALYST [Suspect]
     Active Substance: RILONACEPT
     Indication: Pericarditis
     Dosage: 160 MG X2 AS LOADING DOSE
     Route: 058
  2. PREDNISONE [Concomitant]
     Active Substance: PREDNISONE
     Indication: Product used for unknown indication
  3. COLCHICINE [Concomitant]
     Active Substance: COLCHICINE
     Indication: Product used for unknown indication
  4. PLAQUENIL [Concomitant]
     Active Substance: HYDROXYCHLOROQUINE SULFATE
     Indication: Product used for unknown indication

REACTIONS (11)
  - Injection site pain [Unknown]
  - Injection site haemorrhage [Unknown]
  - Rhinorrhoea [Unknown]
  - Cough [Unknown]
  - Paraesthesia [Unknown]
  - Asthenia [Unknown]
  - Fatigue [Unknown]
  - Pruritus [Unknown]
  - White blood cell count decreased [Unknown]
  - Nasal discomfort [Unknown]
  - Dizziness [Unknown]

NARRATIVE: CASE EVENT DATE: 20231020
